FAERS Safety Report 7520630-8 (Version None)
Quarter: 2011Q2

REPORT INFORMATION
  Report Type: 
  Country: None (occurrence: None)
  Receive Date: 20110603
  Receipt Date: 20110524
  Transmission Date: 20111010
  Serious: Yes (Hospitalization)
  Sender: FDA-Public Use
  Company Number: US-BIOGENIDEC-2011BI019589

PATIENT
  Sex: Female

DRUGS (6)
  1. MIRALAX [Concomitant]
     Indication: CONSTIPATION
  2. AMITRIPTYLINE HCL [Concomitant]
     Indication: INSOMNIA
     Dates: start: 20090101
  3. MIRAPEX [Concomitant]
     Indication: RESTLESS LEGS SYNDROME
  4. AVONEX [Suspect]
     Indication: MULTIPLE SCLEROSIS
     Route: 030
     Dates: start: 20030101
  5. AVONEX [Suspect]
     Route: 030
     Dates: start: 20020822, end: 20030101
  6. CLONAZEPAM [Concomitant]
     Indication: INSOMNIA
     Dates: start: 20030101

REACTIONS (10)
  - NEUROPATHY PERIPHERAL [None]
  - FIBROMYALGIA [None]
  - DIVERTICULITIS [None]
  - INTERVERTEBRAL DISC PROTRUSION [None]
  - DIZZINESS [None]
  - HYPERHIDROSIS [None]
  - COLITIS [None]
  - LOSS OF CONSCIOUSNESS [None]
  - ABDOMINAL DISCOMFORT [None]
  - MEMORY IMPAIRMENT [None]
